FAERS Safety Report 23232281 (Version 2)
Quarter: 2023Q4

REPORT INFORMATION
  Report Type: Spontaneous
  Country: US (occurrence: US)
  Receive Date: 20231127
  Receipt Date: 20231127
  Transmission Date: 20240110
  Serious: No
  Sender: FDA-Public Use
  Company Number: US-ALKERMES INC.-ALK-2023-004372

PATIENT
  Sex: Female
  Weight: 77.551 kg

DRUGS (4)
  1. ARISTADA [Suspect]
     Active Substance: ARIPIPRAZOLE LAUROXIL
     Indication: Bipolar I disorder
     Dosage: 1064 MILLIGRAM, Q2MO
     Route: 030
     Dates: start: 20231027
  2. ARISTADA INITIO [Suspect]
     Active Substance: ARIPIPRAZOLE LAUROXIL
     Indication: Bipolar I disorder
     Dosage: 675 MILLIGRAM, ONE TIME DOSE
     Route: 030
     Dates: start: 20231027
  3. PROZAC [Concomitant]
     Active Substance: FLUOXETINE HYDROCHLORIDE
     Indication: Depression
     Dosage: UNK
     Route: 065
  4. ATIVAN [Concomitant]
     Active Substance: LORAZEPAM
     Indication: Product used for unknown indication
     Dosage: UNK
     Route: 065

REACTIONS (6)
  - Depression [Unknown]
  - Tremor [Unknown]
  - Tinnitus [Recovered/Resolved]
  - Off label use [Not Recovered/Not Resolved]
  - Anxiety [Unknown]
  - Restlessness [Unknown]
